FAERS Safety Report 4437656-3 (Version None)
Quarter: 2004Q3

REPORT INFORMATION
  Report Type: 
  Country: None (occurrence: None)
  Receive Date: 20040831
  Receipt Date: 20040831
  Transmission Date: 20050211
  Serious: No
  Sender: FDA-Public Use
  Company Number: None

PATIENT
  Sex: Male
  Weight: 86.1834 kg

DRUGS (1)
  1. CRESTOR [Suspect]
     Dosage: 1 PER DAY
     Dates: start: 20040630, end: 20040709

REACTIONS (10)
  - ASTHENIA [None]
  - DIZZINESS [None]
  - HEADACHE [None]
  - JOINT SWELLING [None]
  - LOCAL SWELLING [None]
  - MYALGIA [None]
  - NAUSEA [None]
  - OEDEMA PERIPHERAL [None]
  - SWELLING FACE [None]
  - VISION BLURRED [None]
